FAERS Safety Report 7479030-1 (Version None)
Quarter: 2011Q2

REPORT INFORMATION
  Report Type: 
  Country: None (occurrence: None)
  Receive Date: 20110511
  Receipt Date: 20110511
  Transmission Date: 20111010
  Serious: Yes (Disabling)
  Sender: FDA-Public Use
  Company Number: None

PATIENT
  Age: 39 Year
  Sex: Female
  Weight: 90.7194 kg

DRUGS (1)
  1. CYMBALTA [Suspect]
     Indication: DEPRESSION
     Dosage: 60MG 1 X DAY ORAL
     Route: 048
     Dates: start: 20100301, end: 20110401

REACTIONS (3)
  - ARTHRALGIA [None]
  - MYALGIA [None]
  - SEROTONIN SYNDROME [None]
